FAERS Safety Report 15584743 (Version 2)
Quarter: 2018Q4

REPORT INFORMATION
  Report Type: Spontaneous
  Country: JP (occurrence: JP)
  Receive Date: 20181105
  Receipt Date: 20181116
  Transmission Date: 20190205
  Serious: Yes (Hospitalization)
  Sender: FDA-Public Use
  Company Number: JP-MITSUBISHI TANABE PHARMA CORPORATION-MTPC2018-0029264

PATIENT
  Age: 6 Decade
  Sex: Female

DRUGS (3)
  1. RADICUT [Suspect]
     Active Substance: EDARAVONE
     Route: 041
  2. RADICUT [Suspect]
     Active Substance: EDARAVONE
     Indication: AMYOTROPHIC LATERAL SCLEROSIS
     Route: 041
  3. RADICUT [Suspect]
     Active Substance: EDARAVONE
     Route: 041

REACTIONS (3)
  - Pyrexia [Unknown]
  - Cholangitis [Unknown]
  - Hepatic function abnormal [Unknown]
